FAERS Safety Report 6297925-1 (Version None)
Quarter: 2009Q3

REPORT INFORMATION
  Report Type: 
  Country: None (occurrence: None)
  Receive Date: 20090805
  Receipt Date: 20090729
  Transmission Date: 20100115
  Serious: Yes (Other)
  Sender: FDA-Public Use
  Company Number: A0799307A

PATIENT
  Age: 44 Year
  Sex: Female

DRUGS (6)
  1. LAMICTAL [Suspect]
     Dosage: 200MG TWICE PER DAY
     Route: 048
     Dates: start: 20070501
  2. LAMOTRIGINE [Suspect]
     Dosage: 200MG TWICE PER DAY
     Route: 048
     Dates: start: 20090526, end: 20090528
  3. B-12 VITAMIN [Concomitant]
  4. VITAMIN B1 TAB [Concomitant]
  5. FIORICET [Concomitant]
  6. PEPCID [Concomitant]

REACTIONS (1)
  - CONVULSION [None]
